FAERS Safety Report 10386797 (Version 1)
Quarter: 2014Q1

REPORT INFORMATION
  Report Type: Spontaneous
  Country: US (occurrence: None)
  Receive Date: 20140306
  Receipt Date: 20140306
  Transmission Date: 20141002
  Serious: Yes (Hospitalization)
  Sender: FDA-Public Use
  Company Number: 163-21880-13062747

PATIENT
  Age: 60 Year
  Sex: Male
  Weight: 95.26 kg

DRUGS (7)
  1. REVLIMID (LENALIDOMIDE) (25 MILLIGRAM, CAPSULES) [Suspect]
     Indication: PLASMA CELL MYELOMA
     Route: 048
     Dates: start: 201010
  2. ATIVAN (LORAZEPAM) [Concomitant]
  3. DILAUDID (HYDROMORPHONE HYDROCHLORIDE) [Concomitant]
  4. GABAPENTIN (GABAPENTIN) [Concomitant]
  5. VITAMIN D (ERGOCALCIFEROL) [Concomitant]
  6. MAGNESIUIM (MAGNESIIUM) [Concomitant]
  7. ACYCLOVIR SODIUM (ACICLOVIR SODIUM) [Concomitant]

REACTIONS (2)
  - Pneumonia aspiration [None]
  - Abdominal pain upper [None]
